FAERS Safety Report 7283001-8 (Version None)
Quarter: 2011Q1

REPORT INFORMATION
  Report Type: 
  Country: None (occurrence: None)
  Receive Date: 20110209
  Receipt Date: 20110205
  Transmission Date: 20110831
  Serious: Yes (Other)
  Sender: FDA-Public Use
  Company Number: CR-PFIZER INC-2011026386

PATIENT
  Age: 59 Year
  Sex: Female
  Weight: 63 kg

DRUGS (4)
  1. CHAMPIX [Suspect]
     Indication: SMOKING CESSATION THERAPY
     Dosage: 1 MG, 2X/DAY
     Route: 048
     Dates: start: 20101216
  2. PRISTIQ [Concomitant]
     Dosage: UNK
     Route: 048
     Dates: start: 20100801
  3. COAPROVEL [Concomitant]
     Dosage: UNK
     Route: 048
     Dates: start: 20070101
  4. LEXOTAN [Concomitant]
     Dosage: UNK
     Route: 048
     Dates: start: 20100801

REACTIONS (2)
  - HYPERTENSION [None]
  - ANXIETY [None]
